FAERS Safety Report 8989077 (Version 2)
Quarter: 2013Q1

REPORT INFORMATION
  Report Type: Spontaneous
  Country: JP (occurrence: None)
  Receive Date: 20121218
  Receipt Date: 20121226
  Transmission Date: 20140127
  Serious: Yes (Disabling)
  Sender: FDA-Public Use
  Company Number: JP-010339

PATIENT
  Age: 67 Year
  Sex: Male
  Weight: 55 kg

DRUGS (2)
  1. GONAX [Suspect]
     Indication: PROSTATE CANCER
     Dosage: 1X
     Route: 058
     Dates: start: 20121106, end: 20121106
  2. EDIROL [Concomitant]

REACTIONS (5)
  - Lymphoedema [None]
  - Pain in extremity [None]
  - Prostatic specific antigen increased [None]
  - Metastases to lymph nodes [None]
  - Prostate cancer [None]
